FAERS Safety Report 6271719-5 (Version None)
Quarter: 2009Q3

REPORT INFORMATION
  Report Type: 
  Country: None (occurrence: None)
  Receive Date: 20090717
  Receipt Date: 20090713
  Transmission Date: 20100115
  Serious: Yes (Other)
  Sender: FDA-Public Use
  Company Number: JP-ELI_LILLY_AND_COMPANY-JP200907003214

PATIENT
  Sex: Male

DRUGS (2)
  1. GEMZAR [Suspect]
     Route: 042
  2. CISPLATIN [Concomitant]
     Route: 042

REACTIONS (1)
  - TUBERCULOSIS [None]
